FAERS Safety Report 12684812 (Version 1)
Quarter: 2016Q3

REPORT INFORMATION
  Report Type: Spontaneous
  Country: DK (occurrence: DK)
  Receive Date: 20160825
  Receipt Date: 20160825
  Transmission Date: 20161109
  Serious: Yes (Other)
  Sender: FDA-Public Use
  Company Number: DK-GLAXOSMITHKLINE-DK2016119985

PATIENT
  Sex: Female

DRUGS (4)
  1. SERETIDE [Suspect]
     Active Substance: FLUTICASONE PROPIONATE\SALMETEROL XINAFOATE
     Indication: PULMONARY FIBROSIS
     Dosage: 1 PUFF(S), BID, DOSE: 1 PUFF X 2
     Route: 055
     Dates: start: 20120309
  2. BERODUAL [Concomitant]
     Active Substance: FENOTEROL HYDROBROMIDE\IPRATROPIUM BROMIDE
     Indication: PULMONARY FIBROSIS
     Dosage: UNK
     Route: 065
     Dates: start: 20120914
  3. PREDNISOLON [Suspect]
     Active Substance: PREDNISOLONE
     Indication: PULMONARY FIBROSIS
     Dosage: UNK
     Route: 048
     Dates: start: 20100713, end: 20100723
  4. VENTOLINE [Concomitant]
     Active Substance: ALBUTEROL
     Indication: PRIMARY CILIARY DYSKINESIA
     Dosage: UNK
     Route: 065
     Dates: start: 20120914

REACTIONS (10)
  - Pain in extremity [Unknown]
  - Osteoarthritis [Unknown]
  - Joint swelling [Unknown]
  - Polyarthritis [Unknown]
  - Feeling hot [Unknown]
  - Erythema [Unknown]
  - Osteoporosis [Not Recovered/Not Resolved]
  - Peripheral swelling [Unknown]
  - Fatigue [Unknown]
  - Arthralgia [Unknown]

NARRATIVE: CASE EVENT DATE: 2015
